FAERS Safety Report 5655485-X (Version None)
Quarter: 2008Q1

REPORT INFORMATION
  Report Type: 
  Country: None (occurrence: None)
  Receive Date: 20080307
  Receipt Date: 20080226
  Transmission Date: 20080703
  Serious: Yes (Other)
  Sender: FDA-Public Use
  Company Number: US-ELI_LILLY_AND_COMPANY-US200803000131

PATIENT
  Sex: Female
  Weight: 81.633 kg

DRUGS (11)
  1. BYETTA [Suspect]
     Dosage: 5 UG, 2/D
     Route: 058
     Dates: start: 20070201, end: 20070401
  2. BYETTA [Suspect]
     Dosage: 10 UG, 2/D
     Route: 058
     Dates: start: 20070401
  3. COSOPT [Concomitant]
     Indication: GLAUCOMA
     Dosage: UNK, EACH EVENING
     Route: 047
     Dates: start: 20060101
  4. LUMIGAN [Concomitant]
     Indication: GLAUCOMA
     Dosage: UNK, EACH EVENING
     Route: 047
     Dates: start: 20060101
  5. HUMALOG [Concomitant]
     Dosage: 9 U, EACH MORNING
     Dates: end: 20070201
  6. HUMALOG [Concomitant]
     Dosage: 15 U, OTHER
     Dates: end: 20070201
  7. HUMALOG [Concomitant]
     Dosage: 21 U, EACH EVENING
     Dates: end: 20070201
  8. HUMALOG [Concomitant]
     Dosage: 3 U, EACH MORNING
     Dates: start: 20070201
  9. HUMALOG [Concomitant]
     Dosage: 5 U, OTHER
     Dates: start: 20070201
  10. HUMALOG [Concomitant]
     Dosage: 7 U, EACH EVENING
     Dates: start: 20070201
  11. LEVEMIR [Concomitant]
     Dosage: 56 U, DAILY (1/D)

REACTIONS (11)
  - BLOOD GLUCOSE DECREASED [None]
  - BLOOD GLUCOSE INCREASED [None]
  - DECREASED APPETITE [None]
  - EYE DISCHARGE [None]
  - EYE HAEMORRHAGE [None]
  - INCREASED APPETITE [None]
  - MACULAR DEGENERATION [None]
  - NAUSEA [None]
  - VISION BLURRED [None]
  - VOMITING [None]
  - WEIGHT DECREASED [None]
